FAERS Safety Report 6512160-7 (Version None)
Quarter: 2009Q4

REPORT INFORMATION
  Report Type: 
  Country: None (occurrence: None)
  Receive Date: 20091222
  Receipt Date: 20090612
  Transmission Date: 20100525
  Serious: No
  Sender: FDA-Public Use
  Company Number: US-ASTRAZENECA-2009UW15114

PATIENT
  Age: 68 Year
  Sex: Female
  Weight: 58.5 kg

DRUGS (5)
  1. CRESTOR [Suspect]
     Route: 048
     Dates: start: 20090101
  2. AMLODIPINE [Concomitant]
     Indication: HYPERTENSION
  3. FUROSEMIDE [Concomitant]
     Indication: OEDEMA
  4. LEXAPRO [Concomitant]
     Indication: DEPRESSION
  5. QUINAPRIL [Concomitant]
     Indication: HYPERTENSION

REACTIONS (4)
  - FEELING ABNORMAL [None]
  - HEADACHE [None]
  - INSOMNIA [None]
  - NAUSEA [None]
